FAERS Safety Report 20454546 (Version 1)
Quarter: 2022Q1

REPORT INFORMATION
  Report Type: Spontaneous
  Country: US (occurrence: US)
  Receive Date: 20220210
  Receipt Date: 20220210
  Transmission Date: 20220423
  Serious: Yes (Other)
  Sender: FDA-Public Use
  Company Number: US-BEH-2022141729

PATIENT
  Sex: Male

DRUGS (1)
  1. HUMATE-P [Suspect]
     Active Substance: HUMAN COAGULATION FACTOR VIII/VON WILLEBRAND FACTOR COMPLEX
     Indication: Von Willebrand^s disease
     Dosage: 1680-2100 UNITS EVERY 48HOURS, PRN
     Route: 042
     Dates: start: 20200120

REACTIONS (1)
  - COVID-19 [Recovered/Resolved]
